FAERS Safety Report 10042460 (Version 3)
Quarter: 2014Q2

REPORT INFORMATION
  Report Type: Spontaneous
  Country: BR (occurrence: BR)
  Receive Date: 20140327
  Receipt Date: 20140513
  Transmission Date: 20141212
  Serious: Yes (Other)
  Sender: FDA-Public Use
  Company Number: BR-ALLERGAN-1404397US

PATIENT
  Sex: Female

DRUGS (2)
  1. ZYPRED [Suspect]
     Indication: POST PROCEDURAL INFECTION
     Dosage: 1 GTT, Q3HR
     Route: 047
     Dates: start: 20140305
  2. EYE DROPS [Suspect]
     Indication: POST PROCEDURAL INFECTION

REACTIONS (5)
  - Post procedural infection [Unknown]
  - Visual impairment [Unknown]
  - Eye irritation [Unknown]
  - Eye pain [Unknown]
  - Drug ineffective [Unknown]
